FAERS Safety Report 8850435 (Version 1)
Quarter: 2012Q4

REPORT INFORMATION
  Report Type: Report from Study
  Country: DE (occurrence: DE)
  Receive Date: 20121019
  Receipt Date: 20121019
  Transmission Date: 20130627
  Serious: Yes (Life-Threatening, Hospitalization, Other)
  Sender: FDA-Public Use
  Company Number: DE-OTSUKA-EU-2011-10157

PATIENT
  Sex: Female
  Weight: 82 kg

DRUGS (9)
  1. SAMSCA [Suspect]
     Indication: INAPPROPRIATE ANTIDIURETIC HORMONE SECRETION
     Dosage: 15 Mg milligram(s), daily dose
     Route: 048
     Dates: start: 20110603
  2. CITALOPRAM [Concomitant]
     Indication: DEPRESSION
     Dosage: 40 Mg milligram(s), daily dose
     Route: 048
  3. MIRTAZAPIN [Concomitant]
     Indication: DEPRESSION
     Dosage: 30 Mg milligram(s), daily dose
     Route: 048
  4. TAVOR [Concomitant]
     Indication: ANXIETY DISORDER
     Dosage: 1 Mg milligram(s), daily dose
     Route: 048
  5. KEVATRIL [Concomitant]
     Indication: VOMITING
     Dosage: 3 Mg milligram(s), daily dose
     Route: 042
     Dates: start: 20110609, end: 20110611
  6. CARBOPLATIN [Concomitant]
     Indication: SMALL CELL LUNG CANCER STAGE UNSPECIFIED
     Dosage: 632 Mg milligram(s), daily dose
     Route: 042
     Dates: start: 20110609, end: 20110609
  7. ETOPOSID [Concomitant]
     Indication: SMALL CELL LUNG CANCER STAGE UNSPECIFIED
     Dosage: 277 Mg milligram(s), daily dose
     Route: 042
     Dates: start: 20110609, end: 20110611
  8. MORPHIN [Concomitant]
     Indication: PAIN
     Dosage: 4 Gtt drop(s), daily dose
     Route: 048
  9. MORPHIN [Concomitant]
     Indication: DYSPNOEA

REACTIONS (3)
  - Gastrointestinal haemorrhage [Recovered/Resolved]
  - Rapid correction of hyponatraemia [Recovered/Resolved]
  - Haemoptysis [Recovered/Resolved]
